FAERS Safety Report 5272364-0 (Version None)
Quarter: 2007Q1

REPORT INFORMATION
  Report Type: 
  Country: None (occurrence: None)
  Receive Date: 20070320
  Receipt Date: 20070320
  Transmission Date: 20070707
  Serious: Yes (Hospitalization, Other)
  Sender: FDA-Public Use
  Company Number: None

PATIENT
  Age: 73 Year
  Sex: Male

DRUGS (1)
  1. TAMSULOSIN HCL [Suspect]

REACTIONS (3)
  - DIZZINESS [None]
  - PRESYNCOPE [None]
  - VERTIGO [None]
